FAERS Safety Report 16348462 (Version 1)
Quarter: 2019Q2

REPORT INFORMATION
  Report Type: Report from Study
  Country: None (occurrence: US)
  Receive Date: 20190523
  Receipt Date: 20190523
  Transmission Date: 20190711
  Serious: Yes (Hospitalization, Other)
  Sender: FDA-Public Use
  Company Number: US-ABBVIE-19K-163-2665744-00

PATIENT
  Age: 25 Year
  Sex: Male

DRUGS (3)
  1. HUMIRA [Suspect]
     Active Substance: ADALIMUMAB
     Route: 058
     Dates: start: 201901
  2. HUMIRA [Suspect]
     Active Substance: ADALIMUMAB
     Indication: CROHN^S DISEASE
     Route: 058
     Dates: start: 20181012, end: 201811
  3. HUMIRA [Suspect]
     Active Substance: ADALIMUMAB
     Route: 058
     Dates: start: 201901, end: 201905

REACTIONS (15)
  - Abdominal pain upper [Recovering/Resolving]
  - Abnormal faeces [Recovering/Resolving]
  - Weight decreased [Recovering/Resolving]
  - Product packaging quantity issue [Unknown]
  - Fatigue [Unknown]
  - Pyrexia [Unknown]
  - Weight increased [Unknown]
  - Incision site impaired healing [Unknown]
  - Rectal haemorrhage [Recovering/Resolving]
  - Decreased appetite [Unknown]
  - Frequent bowel movements [Recovering/Resolving]
  - Seizure [Unknown]
  - Upper respiratory tract infection [Unknown]
  - Arthralgia [Unknown]
  - Diarrhoea [Recovering/Resolving]

NARRATIVE: CASE EVENT DATE: 2018
